FAERS Safety Report 13511018 (Version 5)
Quarter: 2018Q1

REPORT INFORMATION
  Report Type: Report from Study
  Country: IT (occurrence: IT)
  Receive Date: 20170503
  Receipt Date: 20180312
  Transmission Date: 20180508
  Serious: Yes (Hospitalization)
  Sender: FDA-Public Use
  Company Number: IT-ALLERGAN-1717261US

PATIENT
  Age: 51 Year
  Sex: Male

DRUGS (3)
  1. MORPHINE DERIVATIVE [Concomitant]
     Dosage: UNK
  2. ESCITALOPRAM OXALATE UNK [Suspect]
     Active Substance: ESCITALOPRAM OXALATE
     Indication: INTENTIONAL SELF-INJURY
     Dosage: 10 MG, IN TOTAL
     Route: 048
     Dates: start: 20170410, end: 20170410
  3. XANAX [Suspect]
     Active Substance: ALPRAZOLAM
     Indication: INTENTIONAL SELF-INJURY
     Dosage: 0.25 MG, IN TOTAL
     Route: 048
     Dates: start: 20170410, end: 20170410

REACTIONS (5)
  - Drug abuse [Unknown]
  - Crying [Unknown]
  - Agitation [Unknown]
  - Intentional self-injury [Unknown]
  - Off label use [Unknown]

NARRATIVE: CASE EVENT DATE: 20170410
